FAERS Safety Report 5301227-7 (Version None)
Quarter: 2007Q2

REPORT INFORMATION
  Report Type: 
  Country: None (occurrence: None)
  Receive Date: 20070418
  Receipt Date: 20070406
  Transmission Date: 20071010
  Serious: Yes (Hospitalization)
  Sender: FDA-Public Use
  Company Number: US-PFIZER INC-2007029942

PATIENT
  Sex: Female

DRUGS (1)
  1. GEODON [Suspect]
     Dosage: TEXT:UNKNOWN

REACTIONS (8)
  - ANOREXIA [None]
  - DRUG WITHDRAWAL SYNDROME [None]
  - HYPOAESTHESIA [None]
  - INCONTINENCE [None]
  - MUSCLE TWITCHING [None]
  - RENAL PAIN [None]
  - SUICIDAL IDEATION [None]
  - VISION BLURRED [None]
